FAERS Safety Report 20696231 (Version 1)
Quarter: 2022Q2

REPORT INFORMATION
  Report Type: Spontaneous
  Country: US (occurrence: None)
  Receive Date: 20220408
  Receipt Date: 20220408
  Transmission Date: 20220721
  Serious: Yes (Death)
  Sender: FDA-Public Use
  Company Number: None

PATIENT
  Age: 49 Year
  Sex: Female
  Weight: 127 kg

DRUGS (1)
  1. BARICITINIB [Suspect]
     Active Substance: BARICITINIB
     Dosage: FREQUENCY : DAILY;?
     Route: 048
     Dates: start: 20211008, end: 20211016

REACTIONS (7)
  - Hypertension [None]
  - Tachycardia [None]
  - Acute myocardial infarction [None]
  - Cardiac arrest [None]
  - Hypoxia [None]
  - Myocardial ischaemia [None]
  - Ventricular tachycardia [None]

NARRATIVE: CASE EVENT DATE: 20211016
